FAERS Safety Report 11396604 (Version 4)
Quarter: 2015Q4

REPORT INFORMATION
  Report Type: Spontaneous
  Country: NL (occurrence: NL)
  Receive Date: 20150819
  Receipt Date: 20151109
  Transmission Date: 20160304
  Serious: Yes (Hospitalization)
  Sender: FDA-Public Use
  Company Number: NL-TEVA-586577ISR

PATIENT
  Age: 68 Year
  Sex: Male

DRUGS (9)
  1. SLOW K TABLET MGA 600MG [Concomitant]
     Dosage: 600 MILLIGRAM DAILY; ONCE DAILY ONE PIECE
     Route: 048
  2. SIMVASTATINE TABLET FO 40MG [Concomitant]
     Dosage: 40 MILLIGRAM DAILY; ONCE DAILY ONE PIECE
     Route: 048
  3. LANOXIN TABLET 0,25MG [Concomitant]
     Dosage: 250 MICROGRAM DAILY; ONCE DAILY ONE PIECE
     Route: 048
  4. METFORMIN [Suspect]
     Active Substance: METFORMIN HYDROCHLORIDE
     Indication: DIABETES MELLITUS
     Dosage: 1000 MILLIGRAM DAILY; TWICE DAILY ONE PIECE
     Route: 048
     Dates: start: 201505, end: 20150713
  5. FENPROCOUMON TABLET 3MG [Interacting]
     Active Substance: PHENPROCOUMON
     Indication: ATRIAL FIBRILLATION
     Dosage: ACCORDING TO PRESCRIPTION THROMBOSIS SERVICE.
     Route: 048
  6. ESOMEPRAZOL CAPSULE MSR 40MG [Concomitant]
     Dosage: ONCE DAILY ONE PIECE
     Route: 048
  7. FUROSEMIDE TABLET 40MG [Concomitant]
     Active Substance: FUROSEMIDE
     Dosage: 40 MILLIGRAM DAILY; ONCE DAILY ONE PIECE
     Route: 048
  8. TRAMADOL CAPSULE 50MG [Concomitant]
     Dosage: 150 MILLIGRAM DAILY; THREE TIMES DAILY ONE PIECE
     Route: 048
  9. SELOKEEN ZOC 100 TABLET MGA  95MG [Concomitant]
     Dosage: 100 MILLIGRAM DAILY; ONCE DAILY ONE PIECE
     Route: 048

REACTIONS (2)
  - International normalised ratio decreased [Unknown]
  - Drug interaction [Unknown]

NARRATIVE: CASE EVENT DATE: 20150615
